FAERS Safety Report 7699750 (Version 18)
Quarter: 2014Q1

REPORT INFORMATION
  Report Type: Spontaneous
  Country: US (occurrence: US)
  Receive Date: 20101208
  Receipt Date: 20140321
  Transmission Date: 20141002
  Serious: Yes (Hospitalization, Other)
  Sender: FDA-Public Use
  Company Number: PHEH2010US03872

PATIENT
  Sex: Male
  Weight: 88.44 kg

DRUGS (16)
  1. ZOMETA [Suspect]
     Route: 042
     Dates: end: 20091210
  2. PRILOSEC [Suspect]
     Indication: GASTROOESOPHAGEAL REFLUX DISEASE
  3. AMBIEN [Concomitant]
     Dosage: 12.5 MG, PRN
  4. ASPIRIN [Concomitant]
     Dosage: 81 MG, QD
  5. CRESTOR [Concomitant]
     Indication: BLOOD CHOLESTEROL
     Dosage: 20 MG, QD
  6. GABAPENTIN [Concomitant]
     Indication: HOT FLUSH
     Dosage: 100 MG, TID
  7. CIPROFLOXACIN [Concomitant]
     Dosage: 500 MG, UNK
  8. LIPITOR [Concomitant]
  9. ECOTRIN [Concomitant]
  10. RESTORIL [Concomitant]
  11. ZANTAC [Concomitant]
  12. ADVAIR [Concomitant]
  13. EFFEXOR [Concomitant]
  14. ALBUTEROL [Concomitant]
  15. KETOCONAZOLE [Concomitant]
  16. LEUPROLIDE ACETATE [Concomitant]

REACTIONS (118)
  - Chest pain [Unknown]
  - Osteonecrosis of jaw [Unknown]
  - Injury [Unknown]
  - Exostosis [Unknown]
  - Excoriation [Unknown]
  - Physical disability [Unknown]
  - Pain [Unknown]
  - Anxiety [Unknown]
  - Anhedonia [Unknown]
  - General physical health deterioration [Unknown]
  - Foot deformity [Unknown]
  - Skin ulcer [Recovered/Resolved]
  - Cataract [Unknown]
  - Retinopathy hypertensive [Unknown]
  - Dyspnoea exertional [Unknown]
  - Large intestine polyp [Unknown]
  - Diverticulitis [Unknown]
  - Haemorrhoids [Unknown]
  - Anal fissure [Unknown]
  - Chronic obstructive pulmonary disease [Unknown]
  - Asthma [Unknown]
  - Localised infection [Unknown]
  - Peroneal muscular atrophy [Unknown]
  - Blindness [Unknown]
  - Diabetes mellitus [Unknown]
  - Hepatitis B [Unknown]
  - Arthritis [Unknown]
  - Prostate cancer metastatic [Unknown]
  - Colitis [Unknown]
  - Metastases to bone [Unknown]
  - Aortic aneurysm [Unknown]
  - Hyperkalaemia [Unknown]
  - Spondylolisthesis [Unknown]
  - Intervertebral disc protrusion [Unknown]
  - Lumbar spinal stenosis [Unknown]
  - Renal failure [Unknown]
  - Upper respiratory tract infection [Unknown]
  - Osteomyelitis [Unknown]
  - Pulmonary mass [Unknown]
  - Hepatic failure [Unknown]
  - Fall [Unknown]
  - Anaemia [Unknown]
  - Hepatitis C [Unknown]
  - Pleural effusion [Unknown]
  - Rib fracture [Unknown]
  - Arteriosclerosis coronary artery [Unknown]
  - Gingival abscess [Unknown]
  - Osteoarthritis [Unknown]
  - Cellulitis [Recovering/Resolving]
  - Pneumonia [Unknown]
  - Hypotension [Unknown]
  - Vertigo [Unknown]
  - Bronchitis [Unknown]
  - Hyperlipidaemia [Unknown]
  - Contusion [Recovering/Resolving]
  - Bursitis [Unknown]
  - Dizziness [Unknown]
  - Oedema peripheral [Unknown]
  - Insomnia [Unknown]
  - Neuropathic arthropathy [Unknown]
  - Joint dislocation [Unknown]
  - Diabetic foot [Unknown]
  - Hot flush [Unknown]
  - Nocturia [Unknown]
  - Metastases to bladder [Unknown]
  - Bladder outlet obstruction [Unknown]
  - Neuropathy peripheral [Unknown]
  - Impaired healing [Unknown]
  - Tooth abscess [Unknown]
  - Dystrophic calcification [Unknown]
  - Confusional state [Unknown]
  - Neutropenia [Unknown]
  - Respiratory failure [Recovering/Resolving]
  - Thrombocytopenia [Unknown]
  - Malnutrition [Unknown]
  - B-cell lymphoma [Unknown]
  - Leukocytosis [Unknown]
  - Neutrophilia [Unknown]
  - Monocytosis [Unknown]
  - Dyspepsia [Unknown]
  - Dysphagia [Unknown]
  - Abdominal pain upper [Unknown]
  - Hiatus hernia [Unknown]
  - Acquired oesophageal web [Unknown]
  - Blister [Unknown]
  - Aortic dilatation [Unknown]
  - Aortic arteriosclerosis [Unknown]
  - Spinal osteoarthritis [Unknown]
  - Ankle fracture [Unknown]
  - Haematuria [Unknown]
  - Diverticulum intestinal [Unknown]
  - Back pain [Unknown]
  - Deafness [Unknown]
  - Diarrhoea [Unknown]
  - Pollakiuria [Unknown]
  - Metastases to spine [Unknown]
  - Osteosclerosis [Unknown]
  - Prostate cancer [Unknown]
  - Diverticular perforation [Unknown]
  - Abdominal abscess [Unknown]
  - Depression [Unknown]
  - Metastases to bone marrow [Unknown]
  - Hepatic fibrosis [Unknown]
  - Interstitial lung disease [Unknown]
  - Stomatitis [Unknown]
  - Colon cancer [Unknown]
  - Inflammatory bowel disease [Unknown]
  - Orthostatic hypotension [Unknown]
  - Rhinitis allergic [Unknown]
  - Foot fracture [Unknown]
  - Renal cyst [Unknown]
  - Mental status changes [Unknown]
  - Left ventricular hypertrophy [Unknown]
  - Pericardial effusion [Unknown]
  - Mitral valve calcification [Unknown]
  - Mitral valve incompetence [Unknown]
  - Tricuspid valve incompetence [Unknown]
  - Sepsis [Unknown]
